FAERS Safety Report 17707018 (Version 3)
Quarter: 2020Q2

REPORT INFORMATION
  Report Type: Spontaneous
  Country: IE (occurrence: IE)
  Receive Date: 20200424
  Receipt Date: 20200603
  Transmission Date: 20200714
  Serious: Yes (Death, Hospitalization)
  Sender: FDA-Public Use
  Company Number: IE-PFIZER INC-2020162401

PATIENT
  Age: 2 Month
  Sex: Female
  Weight: 3.9 kg

DRUGS (27)
  1. MITOXANTRONE [Concomitant]
     Active Substance: MITOXANTRONE HYDROCHLORIDE
     Indication: ACUTE MYELOID LEUKAEMIA
     Route: 042
     Dates: start: 20200122, end: 20200125
  2. GELCLAIR [Concomitant]
     Indication: MOUTH ULCERATION
     Dosage: UNK
     Dates: start: 20200206, end: 20200213
  3. METANIUM [TITANIUM DIOXIDE;TITANIUM PEROXIDE;TITANIUM SALICYLATE] [Concomitant]
     Indication: DERMATITIS DIAPER
     Dosage: UNK
     Dates: start: 20200214, end: 20200214
  4. METHOTREXATE. [Concomitant]
     Active Substance: METHOTREXATE
     Dosage: SIX DOSES.
     Route: 037
     Dates: start: 202001
  5. PIPERACILLIN. [Concomitant]
     Active Substance: PIPERACILLIN SODIUM
     Indication: NEUTROPENIA
     Dosage: UNK
     Dates: start: 20200203, end: 20200212
  6. VITAMIN D3 [Concomitant]
     Active Substance: CHOLECALCIFEROL
     Indication: PROPHYLAXIS
     Dosage: UNK
     Dates: start: 20200207, end: 20200215
  7. CYCLIZINE [Concomitant]
     Active Substance: CYCLIZINE
     Indication: NAUSEA
     Dates: start: 20200203, end: 20200205
  8. AMILORIDE [Concomitant]
     Active Substance: AMILORIDE
     Indication: HYPERTENSION
     Dates: start: 20200212, end: 20200213
  9. ORAMORPH SR SUSTAINED RELEASE [Concomitant]
     Active Substance: MORPHINE SULFATE
     Indication: PAIN
     Dosage: UNK
     Dates: start: 202001
  10. GENTAMICIN. [Concomitant]
     Active Substance: GENTAMICIN
     Indication: NEUTROPENIA
     Dates: start: 20200205, end: 20200209
  11. AMBISOME [Concomitant]
     Active Substance: AMPHOTERICIN B
     Indication: MUCOSAL INFLAMMATION
     Dates: start: 20200210, end: 20200215
  12. MST [MORPHINE SULFATE] [Concomitant]
     Active Substance: MORPHINE SULFATE
     Indication: PAIN
     Dosage: UNK
     Dates: start: 20200213, end: 20200215
  13. SEPTRIN [Concomitant]
     Active Substance: SULFAMETHOXAZOLE\TRIMETHOPRIM
     Indication: PNEUMOCYSTIS JIROVECII PNEUMONIA
     Dates: start: 20200201, end: 20200202
  14. VITAMIN K [Concomitant]
     Active Substance: PHYTONADIONE
     Dates: start: 20200209, end: 20200211
  15. CLONIDINE. [Concomitant]
     Active Substance: CLONIDINE
     Indication: ANALGESIC THERAPY
     Dosage: UNK
     Dates: start: 20200212, end: 20200212
  16. VITA POS [Concomitant]
     Active Substance: VITAMIN A PALMITATE
     Indication: INTRAOCULAR PRESSURE INCREASED
     Dosage: UNK
     Dates: start: 20200203, end: 20200207
  17. PROMETHAZINE [Concomitant]
     Active Substance: PROMETHAZINE HYDROCHLORIDE
     Indication: VOMITING
     Dosage: UNK
     Dates: start: 20200206, end: 20200211
  18. ORAMORPH SR SUSTAINED RELEASE [Concomitant]
     Active Substance: MORPHINE SULFATE
     Dosage: UNK
     Dates: start: 20200206, end: 20200213
  19. TEICOPLANIN [Concomitant]
     Active Substance: TEICOPLANIN
     Indication: NEUTROPENIA
     Dates: start: 20200209, end: 20200215
  20. ESOMEPRAZOLE. [Concomitant]
     Active Substance: ESOMEPRAZOLE MAGNESIUM
     Indication: GASTROOESOPHAGEAL REFLUX DISEASE
     Dates: start: 20200210, end: 20200215
  21. MST [MORPHINE SULFATE] [Concomitant]
     Active Substance: MORPHINE SULFATE
     Dosage: UNK
     Dates: start: 202001
  22. BRINZOLAMIDE [Concomitant]
     Active Substance: BRINZOLAMIDE
     Indication: INTRAOCULAR PRESSURE INCREASED
     Dates: start: 20200201, end: 20200203
  23. CYTARABINE. [Suspect]
     Active Substance: CYTARABINE
     Indication: ACUTE MYELOID LEUKAEMIA
     Dosage: 30 MG
     Route: 042
     Dates: start: 20200121, end: 20200131
  24. TRANEXAMIC ACID. [Concomitant]
     Active Substance: TRANEXAMIC ACID
     Indication: HAEMORRHAGE PROPHYLAXIS
     Dosage: UNK
     Dates: start: 20200214, end: 20200215
  25. MEROPENEM. [Concomitant]
     Active Substance: MEROPENEM
     Indication: FEBRILE NEUTROPENIA
     Dates: start: 20200212, end: 20200215
  26. TIMOPTOL [Concomitant]
     Active Substance: TIMOLOL
     Indication: INTRAOCULAR PRESSURE INCREASED
     Dates: start: 20200201, end: 20200206
  27. ONDANSETRON [Concomitant]
     Active Substance: ONDANSETRON
     Indication: NAUSEA
     Dates: start: 20200201, end: 20200215

REACTIONS (9)
  - Venoocclusive liver disease [Fatal]
  - Fluid retention [Fatal]
  - Sepsis [Fatal]
  - Bone marrow failure [Fatal]
  - Retrograde portal vein flow [Fatal]
  - Dyspnoea [Fatal]
  - Blood bilirubin increased [Fatal]
  - Ascites [Fatal]
  - Multiple organ dysfunction syndrome [Fatal]

NARRATIVE: CASE EVENT DATE: 20200212
